FAERS Safety Report 8896470 (Version 1)
Quarter: 2012Q4

REPORT INFORMATION
  Report Type: Spontaneous
  Country: FR (occurrence: None)
  Receive Date: 20121102
  Receipt Date: 20121102
  Transmission Date: 20130627
  Serious: Yes (Hospitalization)
  Sender: FDA-Public Use
  Company Number: FR-2012-3671

PATIENT
  Age: 55 Year
  Sex: Female
  Weight: 57.2 kg

DRUGS (3)
  1. NAVELBINE [Suspect]
     Indication: BREAST CANCER
     Dosage: 38 mg, UNK, Intravenous
     Dates: start: 20120904
  2. PERTUZUMAB [Suspect]
     Dosage: 840 mg, per chemo regim, Intravenous
     Route: 042
     Dates: start: 20120904
  3. TRASTUZUMAB [Suspect]
     Dosage: 441 mg, per chemo regim, Intravenous
     Route: 042
     Dates: start: 20120904

REACTIONS (3)
  - Pyrexia [None]
  - Chills [None]
  - Nausea [None]
